FAERS Safety Report 8625517-5 (Version None)
Quarter: 2012Q3

REPORT INFORMATION
  Report Type: 
  Country: None (occurrence: None)
  Receive Date: 20120827
  Receipt Date: 20120824
  Transmission Date: 20120928
  Serious: Yes (Other)
  Sender: FDA-Public Use
  Company Number: US-ABBOTT-12P-163-0967188-00

PATIENT
  Age: 31 Year
  Sex: Female

DRUGS (3)
  1. NORVIR [Suspect]
     Indication: ANTIRETROVIRAL THERAPY
     Dosage: 100 MG/DAY TAKEN AT CONCEPTION
     Route: 048
     Dates: start: 20100817
  2. TRUVADA [Suspect]
     Indication: ANTIRETROVIRAL THERAPY
     Dosage: 1 TAB/CAPS DAILY TAKEN AT CONCEPTION
     Route: 048
     Dates: start: 20100817
  3. REYATAZ [Suspect]
     Indication: ANTIRETROVIRAL THERAPY
     Dosage: 300 MG/DAY TAKEN AT CONCEPTION
     Route: 048
     Dates: start: 20100817

REACTIONS (1)
  - ABORTION SPONTANEOUS [None]
